FAERS Safety Report 16304298 (Version 2)
Quarter: 2019Q2

REPORT INFORMATION
  Report Type: Spontaneous
  Country: US (occurrence: US)
  Receive Date: 20190513
  Receipt Date: 20190620
  Transmission Date: 20190711
  Serious: No
  Sender: FDA-Public Use
  Company Number: US-PFIZER INC-2019194833

PATIENT
  Age: 52 Year
  Sex: Female
  Weight: 63.5 kg

DRUGS (26)
  1. FLUOXETINE [Concomitant]
     Active Substance: FLUOXETINE HYDROCHLORIDE
     Dosage: UNK
     Dates: start: 2010
  2. MAGNESIUM OXIDE. [Concomitant]
     Active Substance: MAGNESIUM OXIDE
     Indication: CARDIAC DISORDER
     Dosage: 2000 MG, DAILY ( TABLETS TAKEN BY MOUTH WITH A MEAL DAILY)
     Route: 048
     Dates: start: 20100422
  3. VITAMIN D 2000 [Concomitant]
     Active Substance: VITAMIN D NOS
     Dosage: UNK
  4. DESMOPRESSIN [Concomitant]
     Active Substance: DESMOPRESSIN
     Dosage: UNK
     Dates: start: 2010
  5. DEXEDRINE [Concomitant]
     Active Substance: DEXTROAMPHETAMINE SULFATE
     Dosage: UNK
     Dates: start: 2010
  6. FLUOXETINE [Concomitant]
     Active Substance: FLUOXETINE HYDROCHLORIDE
     Indication: ANXIETY
     Dosage: 20 MG, 1X/DAY (DAILY)
     Route: 048
     Dates: start: 20100422
  7. CABERGOLINE. [Concomitant]
     Active Substance: CABERGOLINE
     Indication: HYPOTHALAMO-PITUITARY DISORDER
     Dosage: 0.25 MG, UNK (EVERY 2 WEEKS)
     Route: 048
     Dates: start: 20100422
  8. CABERGOLINE. [Concomitant]
     Active Substance: CABERGOLINE
     Dosage: UNK
     Dates: start: 2010
  9. CENTRUM WOMEN [Concomitant]
     Active Substance: VITAMINS
     Indication: VITAMIN SUPPLEMENTATION
     Dosage: 1 DF, DAILY
     Route: 048
  10. MAGNESIUM OXIDE. [Concomitant]
     Active Substance: MAGNESIUM OXIDE
     Dosage: UNK
     Dates: start: 201008
  11. TUMS [Concomitant]
     Active Substance: CALCIUM CARBONATE
     Dosage: UNK
     Dates: start: 201004
  12. GENOTROPIN [Suspect]
     Active Substance: SOMATROPIN
     Dosage: 0.3 UNK, DAILY
     Dates: start: 20160101
  13. OMEPRAZOLE. [Concomitant]
     Active Substance: OMEPRAZOLE
     Dosage: UNK
     Dates: start: 201004
  14. GENOTROPIN [Suspect]
     Active Substance: SOMATROPIN
     Indication: HYPOPITUITARISM
     Dosage: 0.3 MG, 1X/DAY (NIGHTLY)
     Route: 058
     Dates: start: 201701, end: 20190418
  15. GENOTROPIN [Suspect]
     Active Substance: SOMATROPIN
     Dosage: 0.3 MG, 1X/DAY (NIGHTLY)
     Route: 058
     Dates: start: 201701, end: 20190418
  16. HYDROCORTISONE. [Concomitant]
     Active Substance: HYDROCORTISONE
     Indication: HYPOPITUITARISM
     Dosage: 20 MG, 1X/DAY (5MG TABLETS TAKEN BY MOUTH-3 TABLETS IN THE MORNING, 1 TABLET IN AFTERNOON DAILY)
     Route: 048
     Dates: start: 20100422
  17. CENTRUM WOMEN [Concomitant]
     Active Substance: VITAMINS
     Dosage: UNK
  18. DESMOPRESSIN [Concomitant]
     Active Substance: DESMOPRESSIN
     Indication: DIABETES INSIPIDUS
     Dosage: UNK, AS NEEDED (1.5 TABLETS TAKEN BY MOUTH DAILY, WITH ADDITIONAL HALF TABLET TAKEN AS NEEDED)
     Route: 048
     Dates: start: 20100422
  19. LEVOTHYROXINE. [Concomitant]
     Active Substance: LEVOTHYROXINE
     Indication: HYPOTHYROIDISM
     Dosage: 137 UG, 1X/DAY (DAILY)
     Route: 048
     Dates: start: 20100422
  20. OMEPRAZOLE. [Concomitant]
     Active Substance: OMEPRAZOLE
     Indication: NAUSEA
     Dosage: 40 MG, 1X/DAY (DAILY)
     Route: 048
     Dates: start: 20100422
  21. BISOPROLOL FUMARATE. [Concomitant]
     Active Substance: BISOPROLOL FUMARATE
     Dosage: UNK
     Dates: start: 201008
  22. LEVOTHYROXINE. [Concomitant]
     Active Substance: LEVOTHYROXINE
     Dosage: UNK
     Dates: start: 2010
  23. BISOPROLOL FUMARATE. [Concomitant]
     Active Substance: BISOPROLOL FUMARATE
     Indication: CARDIOMYOPATHY
     Dosage: 2.5 MG, 1X/DAY (DAILY)
     Route: 048
  24. DEXEDRINE [Concomitant]
     Active Substance: DEXTROAMPHETAMINE SULFATE
     Indication: HYPOTHALAMO-PITUITARY DISORDER
     Dosage: 15 MG, 1X/DAY (DAILY)
     Route: 048
     Dates: start: 20100422
  25. VITAMIN D 2000 [Concomitant]
     Active Substance: VITAMIN D NOS
     Indication: HYPOTHALAMO-PITUITARY DISORDER
     Dosage: 1 DF, DAILY
     Route: 048
     Dates: start: 20100422
  26. TUMS [Concomitant]
     Active Substance: CALCIUM CARBONATE
     Indication: HYPOTHALAMO-PITUITARY DISORDER
     Dosage: 1500 MG, DAILY (2 CHEWED DAILY BY MOUTH)
     Route: 048
     Dates: start: 20100422

REACTIONS (8)
  - Device issue [Recovered/Resolved]
  - Nausea [Recovered/Resolved]
  - Fatigue [Not Recovered/Not Resolved]
  - Arthralgia [Not Recovered/Not Resolved]
  - Somnolence [Not Recovered/Not Resolved]
  - Asthenia [Not Recovered/Not Resolved]
  - Product dose omission [Unknown]
  - Malaise [Not Recovered/Not Resolved]

NARRATIVE: CASE EVENT DATE: 20190418
